FAERS Safety Report 4886303-5 (Version None)
Quarter: 2006Q1

REPORT INFORMATION
  Report Type: 
  Country: None (occurrence: None)
  Receive Date: 20060120
  Receipt Date: 20050330
  Transmission Date: 20060701
  Serious: Yes (Hospitalization, Other)
  Sender: FDA-Public Use
  Company Number: US-MERCK-0503USA05247

PATIENT
  Age: 61 Year
  Sex: Male
  Weight: 79 kg

DRUGS (5)
  1. VIOXX [Suspect]
     Indication: BACK PAIN
     Route: 048
     Dates: start: 20000707, end: 20041001
  2. BETAGAN [Concomitant]
     Route: 065
  3. ALPHAGAN [Concomitant]
     Route: 065
  4. VIAGRA [Concomitant]
     Route: 065
  5. FOLTX [Concomitant]
     Route: 065

REACTIONS (6)
  - ACUTE MYOCARDIAL INFARCTION [None]
  - ADVERSE EVENT [None]
  - BLOOD PRESSURE DECREASED [None]
  - CORONARY ARTERY DISEASE [None]
  - HEART INJURY [None]
  - STRESS [None]
